FAERS Safety Report 9328906 (Version 1)
Quarter: 2013Q2

REPORT INFORMATION
  Report Type: Spontaneous
  Country: US (occurrence: US)
  Receive Date: 20130604
  Receipt Date: 20130604
  Transmission Date: 20140414
  Serious: No
  Sender: FDA-Public Use
  Company Number: US-PFIZER INC-2013165297

PATIENT
  Age: 53 Year
  Sex: Female
  Weight: 58.5 kg

DRUGS (5)
  1. ZOLOFT [Suspect]
     Indication: DEPRESSION
     Dosage: 25 MG, 1X/DAY
     Route: 048
  2. ZOLOFT [Suspect]
     Dosage: 25 MG, 1X/DAY
     Route: 048
     Dates: start: 201301, end: 2013
  3. ZOLOFT [Suspect]
     Dosage: 50 MG, 1X/DAY
     Route: 048
     Dates: start: 2013, end: 201305
  4. OMEPRAZOLE [Concomitant]
     Dosage: UNK
  5. SIMVASTATIN [Concomitant]
     Dosage: UNK

REACTIONS (5)
  - Drug hypersensitivity [Unknown]
  - Oral discomfort [Unknown]
  - Oedema mouth [Unknown]
  - Oral discomfort [Unknown]
  - Tongue blistering [Unknown]
